FAERS Safety Report 6668454-8 (Version None)
Quarter: 2010Q2

REPORT INFORMATION
  Report Type: 
  Country: None (occurrence: None)
  Receive Date: 20100406
  Receipt Date: 20100326
  Transmission Date: 20101027
  Serious: Yes (Other)
  Sender: FDA-Public Use
  Company Number: PHEH2010US03335

PATIENT
  Sex: Female

DRUGS (7)
  1. FOCALIN [Suspect]
  2. VYVANSE [Suspect]
  3. XANAX [Suspect]
  4. SUBOXONE [Suspect]
  5. ADDERALL 30 [Suspect]
  6. MARIJUANA [Suspect]
  7. AMBIEN [Suspect]

REACTIONS (5)
  - DEPRESSED LEVEL OF CONSCIOUSNESS [None]
  - EYE DISORDER [None]
  - GAIT DISTURBANCE [None]
  - LOSS OF CONSCIOUSNESS [None]
  - SUBSTANCE ABUSE [None]
